FAERS Safety Report 19323370 (Version 1)
Quarter: 2021Q2

REPORT INFORMATION
  Report Type: Spontaneous
  Country: US (occurrence: US)
  Receive Date: 20210528
  Receipt Date: 20210528
  Transmission Date: 20210717
  Serious: No
  Sender: FDA-Public Use
  Company Number: NVSC2021US112442

PATIENT
  Sex: Female

DRUGS (1)
  1. RECLAST [Suspect]
     Active Substance: ZOLEDRONIC ACID
     Indication: PRODUCT USED FOR UNKNOWN INDICATION
     Route: 041

REACTIONS (16)
  - Movement disorder [Unknown]
  - Nausea [Unknown]
  - Hot flush [Unknown]
  - Bone pain [Unknown]
  - Arthralgia [Unknown]
  - Mood altered [Unknown]
  - Dizziness [Unknown]
  - Pyrexia [Unknown]
  - Chest pain [Unknown]
  - Wrong technique in product usage process [Unknown]
  - Chills [Unknown]
  - Headache [Unknown]
  - Pruritus [Unknown]
  - Pain [Unknown]
  - Feeling abnormal [Unknown]
  - Incorrect route of product administration [Unknown]
